FAERS Safety Report 5567702-5 (Version None)
Quarter: 2007Q4

REPORT INFORMATION
  Report Type: 
  Country: None (occurrence: None)
  Receive Date: 20071214
  Receipt Date: 20071205
  Transmission Date: 20080405
  Serious: Yes (Hospitalization)
  Sender: FDA-Public Use
  Company Number: 230122J07USA

PATIENT
  Age: 72 Year
  Sex: Female
  Weight: 75.7507 kg

DRUGS (9)
  1. REBIF [Suspect]
     Indication: MULTIPLE SCLEROSIS
     Dosage: 44 MCG, 3 IN 1 WEEKS, SUBCUTANEOUS
     Route: 058
     Dates: start: 20070430
  2. METOPROLOL TARTRATE [Concomitant]
  3. LIPITOR [Concomitant]
  4. ADVAIR (SERETIDE) [Concomitant]
  5. ZOLOFT [Concomitant]
  6. NEXIUM [Concomitant]
  7. DOXEPIN HCL [Concomitant]
  8. DIOVAN [Concomitant]
  9. ASPIRIN [Concomitant]

REACTIONS (10)
  - CHRONIC OBSTRUCTIVE PULMONARY DISEASE [None]
  - CONDITION AGGRAVATED [None]
  - HYPOAESTHESIA [None]
  - INJECTION SITE ERYTHEMA [None]
  - INJECTION SITE IRRITATION [None]
  - INJECTION SITE PAIN [None]
  - INJECTION SITE PRURITUS [None]
  - INSOMNIA [None]
  - PAIN IN EXTREMITY [None]
  - TRACHEOBRONCHITIS [None]
